FAERS Safety Report 11829537 (Version 1)
Quarter: 2015Q4

REPORT INFORMATION
  Report Type: Spontaneous
  Country: US (occurrence: US)
  Receive Date: 20151212
  Receipt Date: 20151212
  Transmission Date: 20160305
  Serious: No
  Sender: FDA-Public Use
  Company Number: US-PAR PHARMACEUTICAL, INC-2015SCPR010366

PATIENT

DRUGS (1)
  1. FENTANYL CITRATE. [Suspect]
     Active Substance: FENTANYL CITRATE
     Indication: BREAKTHROUGH PAIN
     Dosage: 1 DF, EVERY 6 HOURS

REACTIONS (4)
  - Drug ineffective for unapproved indication [Unknown]
  - Product solubility abnormal [Unknown]
  - Product quality issue [Unknown]
  - Somnolence [Unknown]

NARRATIVE: CASE EVENT DATE: 201502
